FAERS Safety Report 8295066-5 (Version None)
Quarter: 2012Q2

REPORT INFORMATION
  Report Type: 
  Country: None (occurrence: None)
  Receive Date: 20120418
  Receipt Date: 20120413
  Transmission Date: 20120825
  Serious: Yes (Hospitalization)
  Sender: FDA-Public Use
  Company Number: JP-ABBOTT-11P-087-0734495-00

PATIENT
  Sex: Male
  Weight: 57.5 kg

DRUGS (7)
  1. CALCITRIOL [Concomitant]
     Indication: RENAL FAILURE
     Route: 048
  2. PRECIPITATED CALCIUM CARBONATE [Concomitant]
     Indication: RENAL FAILURE
     Route: 048
  3. TPN [Concomitant]
     Indication: CROHN'S DISEASE
  4. HUMIRA [Suspect]
     Dates: start: 20110120, end: 20110120
  5. HUMIRA [Suspect]
     Indication: CROHN'S DISEASE
     Route: 058
     Dates: start: 20110106, end: 20110106
  6. SEVELAMER HYDROCHLORIDE [Concomitant]
     Indication: PRODUCT USED FOR UNKNOWN INDICATION
     Dosage: 250 MG X 12
     Route: 048
  7. HUMIRA [Suspect]
     Dates: start: 20110203

REACTIONS (3)
  - SKIN EXFOLIATION [None]
  - MELAENA [None]
  - ECZEMA [None]
